FAERS Safety Report 5587470-0 (Version None)
Quarter: 2007Q4

REPORT INFORMATION
  Report Type: 
  Country: None (occurrence: None)
  Receive Date: 20071207
  Receipt Date: 20070428
  Transmission Date: 20080405
  Serious: Yes (Other)
  Sender: FDA-Public Use
  Company Number: 2007035240

PATIENT
  Sex: Male

DRUGS (1)
  1. VIAGRA [Suspect]
     Indication: ERECTILE DYSFUNCTION
     Dosage: (50 MG)
     Dates: start: 20070201

REACTIONS (3)
  - DYSURIA [None]
  - PAINFUL ERECTION [None]
  - SPONTANEOUS PENILE ERECTION [None]
